FAERS Safety Report 22805337 (Version 5)
Quarter: 2024Q1

REPORT INFORMATION
  Report Type: Spontaneous
  Country: BR (occurrence: BR)
  Receive Date: 20230809
  Receipt Date: 20240328
  Transmission Date: 20240410
  Serious: Yes (Other)
  Sender: FDA-Public Use
  Company Number: BR-GLAXOSMITHKLINE-BR2023AMR103010

PATIENT

DRUGS (3)
  1. BENLYSTA [Suspect]
     Active Substance: BELIMUMAB
     Indication: Systemic lupus erythematosus
     Dosage: 120 MG; ONE 400 MG BOTTLE AND TWO 120 MG BOTTLES
     Route: 042
     Dates: start: 20170412, end: 20230526
  2. METAMIZOLE [Suspect]
     Active Substance: METAMIZOLE
     Indication: Yellow fever
     Dosage: UNK; USE FOR 8 DAYS
  3. AZITHROMYCIN [Suspect]
     Active Substance: AZITHROMYCIN
     Indication: Yellow fever
     Dosage: 500 MG; USED FOR 8 DAYS

REACTIONS (12)
  - Yellow fever [Recovered/Resolved]
  - Systemic lupus erythematosus [Recovered/Resolved]
  - Arthralgia [Recovered/Resolved]
  - Wheezing [Recovered/Resolved]
  - Fatigue [Recovered/Resolved]
  - Aphasia [Recovered/Resolved]
  - Bronchitis [Recovered/Resolved]
  - Nervousness [Recovered/Resolved]
  - Pyrexia [Recovered/Resolved]
  - Gait inability [Recovered/Resolved]
  - Exposure during pregnancy [Unknown]
  - Live birth [Unknown]

NARRATIVE: CASE EVENT DATE: 20230101
